FAERS Safety Report 9503350 (Version 1)
Quarter: 2013Q1

REPORT INFORMATION
  Report Type: Spontaneous
  Country: US (occurrence: None)
  Receive Date: 20130107
  Receipt Date: 20130107
  Transmission Date: 20140127
  Serious: No
  Sender: FDA-Public Use
  Company Number: PHEH2012US017598

PATIENT
  Sex: 0

DRUGS (1)
  1. GILENYA (FTY) CAPSULE, 0.5MG [Suspect]
     Dosage: 0.5 MG, QD, ORAL
     Route: 048
     Dates: start: 20120907

REACTIONS (6)
  - Fungal infection [None]
  - Visual impairment [None]
  - Depression [None]
  - Headache [None]
  - Fatigue [None]
  - Crying [None]
